FAERS Safety Report 5989626-1 (Version None)
Quarter: 2008Q4

REPORT INFORMATION
  Report Type: 
  Country: None (occurrence: None)
  Receive Date: 20081208
  Receipt Date: 20081208
  Transmission Date: 20090506
  Serious: Yes (Hospitalization, Other)
  Sender: FDA-Public Use
  Company Number: 2008AL012070

PATIENT
  Age: 43 Year
  Sex: Female

DRUGS (6)
  1. GABAPENTIN [Suspect]
     Indication: PAIN
     Dosage: 300 MG;TID; PO
     Route: 048
  2. FLUOXETINE [Suspect]
     Indication: DEPRESSION
     Dosage: 600 MG; PO
     Route: 048
  3. FEVERALL [Suspect]
     Indication: PAIN
     Dosage: 10 G; PO
     Route: 048
  4. COPAXONE [Concomitant]
  5. OXYBUTYNIN CHLORIDE [Concomitant]
  6. ALCOHOL [Concomitant]

REACTIONS (3)
  - ALCOHOL USE [None]
  - MULTIPLE DRUG OVERDOSE [None]
  - SUICIDE ATTEMPT [None]
